FAERS Safety Report 23308254 (Version 2)
Quarter: 2024Q1

REPORT INFORMATION
  Report Type: Spontaneous
  Country: FR (occurrence: FR)
  Receive Date: 20231218
  Receipt Date: 20240316
  Transmission Date: 20240409
  Serious: Yes (Other)
  Sender: FDA-Public Use
  Company Number: FR-002147023-NVSC2023FR267895

PATIENT
  Sex: Female
  Weight: 69 kg

DRUGS (64)
  1. COSENTYX [Suspect]
     Active Substance: SECUKINUMAB
     Indication: Product used for unknown indication
     Dosage: 300 MG, QW (ONCE A WEEK 5 TIMES THEN ONCE A MONTH FOR THE NEXT 3 MONTHS)
     Route: 058
     Dates: start: 20170214
  2. COSENTYX [Suspect]
     Active Substance: SECUKINUMAB
     Dosage: 300 MG, QMO (FOR THE NEXT 6 MONTHS)
     Route: 065
     Dates: start: 20170304
  3. COSENTYX [Suspect]
     Active Substance: SECUKINUMAB
     Dosage: 300 MG, QMO
     Route: 058
     Dates: start: 20180319, end: 20180808
  4. STELARA [Suspect]
     Active Substance: USTEKINUMAB
     Indication: Ankylosing spondylitis
     Dosage: UNK
     Route: 065
     Dates: end: 201809
  5. STELARA [Suspect]
     Active Substance: USTEKINUMAB
     Dosage: UNK
     Route: 065
     Dates: start: 20181008, end: 20181026
  6. STELARA [Suspect]
     Active Substance: USTEKINUMAB
     Dosage: UNK
     Route: 065
     Dates: start: 201812
  7. CODEINE [Concomitant]
     Active Substance: CODEINE
     Indication: Product used for unknown indication
     Dosage: UNK, PRN
     Route: 065
     Dates: start: 20170721
  8. CODEINE [Concomitant]
     Active Substance: CODEINE
     Dosage: UNK
     Route: 065
     Dates: start: 20181211
  9. CODEINE [Concomitant]
     Active Substance: CODEINE
     Dosage: UNK
     Route: 065
  10. DAFALGAN [Concomitant]
     Active Substance: ACETAMINOPHEN
     Indication: Product used for unknown indication
     Dosage: UNK, PRN
     Route: 065
     Dates: start: 20170721
  11. DAFALGAN [Concomitant]
     Active Substance: ACETAMINOPHEN
     Dosage: UNK, PRN
     Route: 065
     Dates: start: 20180808
  12. DAFALGAN [Concomitant]
     Active Substance: ACETAMINOPHEN
     Dosage: UNK
     Route: 065
     Dates: start: 20181211
  13. ACETAMINOPHEN\CODEINE PHOSPHATE [Concomitant]
     Active Substance: ACETAMINOPHEN\CODEINE PHOSPHATE
     Indication: Product used for unknown indication
     Dosage: UNK, PRN
     Route: 065
     Dates: start: 20170304
  14. ESOMEPRAZOLE [Concomitant]
     Active Substance: ESOMEPRAZOLE
     Indication: Product used for unknown indication
     Dosage: 1 DOSAGE FORM, QD (40)
     Route: 065
     Dates: start: 20160204
  15. ESOMEPRAZOLE [Concomitant]
     Active Substance: ESOMEPRAZOLE
     Dosage: UNK (40)
     Route: 065
     Dates: start: 20170304
  16. ESOMEPRAZOLE [Concomitant]
     Active Substance: ESOMEPRAZOLE
     Dosage: 40 MG, QD
     Route: 065
  17. TRAMADOL [Concomitant]
     Active Substance: TRAMADOL\TRAMADOL HYDROCHLORIDE
     Indication: Product used for unknown indication
     Dosage: UNK
     Route: 065
  18. FOLIC ACID [Concomitant]
     Active Substance: FOLIC ACID
     Indication: Product used for unknown indication
     Dosage: UNK
     Route: 065
  19. VITAMIN B12 [Concomitant]
     Active Substance: CYANOCOBALAMIN
     Indication: Product used for unknown indication
     Dosage: UNK
     Route: 065
  20. FLUOXETINE [Concomitant]
     Active Substance: FLUOXETINE HYDROCHLORIDE
     Indication: Product used for unknown indication
     Dosage: UNK
     Route: 065
  21. PREDNISONE [Concomitant]
     Active Substance: PREDNISONE
     Indication: Pain in extremity
     Dosage: UNK
     Route: 065
     Dates: end: 20181026
  22. PREDNISONE [Concomitant]
     Active Substance: PREDNISONE
     Dosage: 5 MG, QD
     Route: 065
  23. PREDNISONE [Concomitant]
     Active Substance: PREDNISONE
     Dosage: 5 MG, LONG COURSE
     Route: 065
  24. PREDNISONE [Concomitant]
     Active Substance: PREDNISONE
     Dosage: 1 DOSAGE FORM, QD, 1 TABLET ORALLY IN THE MORNING FOR 4 MONTHS
     Route: 065
     Dates: start: 20230901
  25. PREDNISONE [Concomitant]
     Active Substance: PREDNISONE
     Dosage: 1 DOSAGE FORM, QD, 1 TABLET ORALLY IN THE  MORNING FOR 1 MONTH
     Route: 065
     Dates: start: 20230901
  26. PREDNISONE [Concomitant]
     Active Substance: PREDNISONE
     Dosage: 5 MG, QD
     Route: 065
  27. FOLIC ACID [Concomitant]
     Active Substance: FOLIC ACID
     Indication: Product used for unknown indication
     Dosage: UNK
     Route: 065
  28. CERTOLIZUMAB [Concomitant]
     Active Substance: CERTOLIZUMAB
     Indication: Product used for unknown indication
     Dosage: UNK
     Route: 065
  29. CERTOLIZUMAB [Concomitant]
     Active Substance: CERTOLIZUMAB
     Dosage: UNK
     Route: 065
     Dates: start: 201901
  30. DOLIPRANE [Concomitant]
     Active Substance: ACETAMINOPHEN
     Indication: Symptomatic treatment
     Dosage: UNK
     Route: 065
     Dates: start: 20161213
  31. DOLIPRANE [Concomitant]
     Active Substance: ACETAMINOPHEN
     Dosage: 500 MG, TID
     Route: 065
  32. NABUMETONE [Concomitant]
     Active Substance: NABUMETONE
     Indication: Symptomatic treatment
     Dosage: UNK
     Route: 065
     Dates: start: 20161213
  33. METHOTREXATE SODIUM [Concomitant]
     Active Substance: METHOTREXATE SODIUM
     Indication: Product used for unknown indication
     Dosage: 20 MG, QW
     Route: 065
     Dates: start: 20160808
  34. METHOTREXATE SODIUM [Concomitant]
     Active Substance: METHOTREXATE SODIUM
     Dosage: UNK, QW (15 TO 20 MG)
     Route: 058
     Dates: start: 201708, end: 201710
  35. METHOTREXATE SODIUM [Concomitant]
     Active Substance: METHOTREXATE SODIUM
     Dosage: 15 MG (INJECTABLE (PEN))
     Route: 065
  36. ACETAMINOPHEN\OPIUM [Concomitant]
     Active Substance: ACETAMINOPHEN\OPIUM
     Indication: Symptomatic treatment
     Dosage: UNK
     Route: 065
     Dates: start: 20160204
  37. SIMPONI [Concomitant]
     Active Substance: GOLIMUMAB
     Indication: Product used for unknown indication
     Dosage: 50 MG, QMO
     Route: 058
     Dates: start: 20160204
  38. NAPROXEN [Concomitant]
     Active Substance: NAPROXEN
     Indication: Product used for unknown indication
     Dosage: UNK (1 TO 2 SUPPOSITORIES PER DAY)
     Route: 065
     Dates: start: 20160204
  39. PLAQUENIL [Concomitant]
     Active Substance: HYDROXYCHLOROQUINE SULFATE
     Indication: Product used for unknown indication
     Dosage: 400 MG, QD
     Route: 065
  40. PLAQUENIL [Concomitant]
     Active Substance: HYDROXYCHLOROQUINE SULFATE
     Dosage: UNK, 1 COMPRIM? PAR VOIE  ORALE LE SOIR FOR 1 MONTH
     Route: 065
     Dates: start: 20231013
  41. PLAQUENIL [Concomitant]
     Active Substance: HYDROXYCHLOROQUINE SULFATE
     Dosage: 200 MG
     Route: 065
     Dates: start: 202106
  42. CORTISONE [Concomitant]
     Active Substance: CORTISONE
     Indication: Product used for unknown indication
     Dosage: 20 MG, QD
     Route: 065
  43. OMEPRAZOLE [Concomitant]
     Active Substance: OMEPRAZOLE
     Indication: Product used for unknown indication
     Dosage: 40 MG, QD
     Route: 065
  44. NIFEDIPINE [Concomitant]
     Active Substance: NIFEDIPINE
     Indication: Raynaud^s phenomenon
     Dosage: 30 MG, BID, 1 TABLET ORALLY TWICE A DAY (MORNING AND EVENING) FOR 4 MONTHS
     Route: 065
     Dates: start: 20230901
  45. HYDROXYCHLOROQUINE [Concomitant]
     Active Substance: HYDROXYCHLOROQUINE
     Indication: Product used for unknown indication
     Dosage: 1 DOSAGE FORM, (1 TABLET ORALLY IN THE EVENING FOR 4 MONTHS)
     Route: 048
     Dates: start: 20230901
  46. NEOFORM [Concomitant]
     Indication: Product used for unknown indication
     Dosage: 1 DOSAGE FORM, TID, (ACUPAN, 1 AMPOULE ORALLY 3  TIMES A DAY IF PAIN FOR 4  MONTHS)
     Route: 065
     Dates: start: 20230901, end: 20230930
  47. DAFALGAN CODEINE [Concomitant]
     Active Substance: ACETAMINOPHEN\CODEINE PHOSPHATE
     Indication: Product used for unknown indication
     Dosage: 1 DOSAGE FORM, TID, (1 TABLETS ORALLY 3 TIMES A DAY IF PAIN FOR 4 MONTHS, CODEINE PHOSPATE 30 MG PLU
     Route: 065
     Dates: start: 20230901
  48. FOLIC ACID [Concomitant]
     Active Substance: FOLIC ACID
     Indication: Product used for unknown indication
     Dosage: 5 MG, QW, 1 TABLET ORALLY WEEKLY (WEDNESDAY) FOR 4 MONTHS
     Route: 048
     Dates: start: 20230901, end: 20231129
  49. FOLIC ACID [Concomitant]
     Active Substance: FOLIC ACID
     Dosage: 5 MG (2 TABLETS
     Route: 065
  50. PARACETAMOL RPG [Concomitant]
     Indication: Product used for unknown indication
     Dosage: 1 DOSAGE FORM, BID, 1 TABLET ORALLY TWICE A  DAY IF PAIN FOR 4 MONTHS
     Route: 065
     Dates: start: 20230901
  51. PARACETAMOL RPG [Concomitant]
     Dosage: 1 DOSAGE FORM, BID, (1 TABLET ORALLY 2 TIMES  A DAY IF PAIN FOR 1 MONTH)
     Route: 065
     Dates: start: 20231013
  52. METHOTREXATE SODIUM [Concomitant]
     Active Substance: METHOTREXATE SODIUM
     Indication: Product used for unknown indication
     Dosage: 1 DOSAGE FORM, QW, 1 SYRINGE  SUBCUTANOUSLY ONCE A WEEK (MONDAY) FOR 4 MONTHS
     Route: 065
     Dates: start: 20230901
  53. METHOTREXATE SODIUM [Concomitant]
     Active Substance: METHOTREXATE SODIUM
     Dosage: 20 MG, QW
     Route: 065
  54. ANETHOLTRITHION [Concomitant]
     Active Substance: ANETHOLTRITHION
     Indication: Product used for unknown indication
     Dosage: 1 DOSAGE FORM, BID, 1 TABLET ORALLY TWICE A  DAY (MORNING AND EVENING) FOR 4 MONTHS
     Route: 048
     Dates: start: 20230901
  55. ANETHOLTRITHION [Concomitant]
     Active Substance: ANETHOLTRITHION
     Dosage: 1 DOSAGE FORM, BID, 1 TABLET ORALLY IN THE  MORNING AND EVENING FOR 4 MONTHS
     Route: 048
     Dates: start: 20231013
  56. ESOMEPRAZOLE SODIUM [Concomitant]
     Active Substance: ESOMEPRAZOLE SODIUM
     Indication: Product used for unknown indication
     Dosage: 1 DOSAGE FORM, QD, 1 CAPSULE ORALLY IN THE EVENING, FOR 4 MONTHS
     Route: 065
     Dates: start: 20230901
  57. ESOMEPRAZOLE SODIUM [Concomitant]
     Active Substance: ESOMEPRAZOLE SODIUM
     Dosage: 1 DOSAGE FORM, QD, 1 CAPSULE ORALLY IN THE  EVENING FOR 1 MONTHS
     Route: 048
     Dates: start: 20231013
  58. BETAMETHASONE DIPROPIONATE\BETAMETHASONE SODIUM PHOSPHATE [Concomitant]
     Active Substance: BETAMETHASONE DIPROPIONATE\BETAMETHASONE SODIUM PHOSPHATE
     Indication: Product used for unknown indication
     Dosage: UNK
     Route: 065
  59. BETAMETHASONE DIPROPIONATE\BETAMETHASONE SODIUM PHOSPHATE [Concomitant]
     Active Substance: BETAMETHASONE DIPROPIONATE\BETAMETHASONE SODIUM PHOSPHATE
     Dosage: UNK
     Route: 065
     Dates: start: 20231013, end: 20231013
  60. ACUPAN [Concomitant]
     Active Substance: NEFOPAM HYDROCHLORIDE
     Indication: Product used for unknown indication
     Dosage: UNK
     Route: 065
     Dates: start: 20231013, end: 20231111
  61. SOLUPRED [Concomitant]
     Indication: Product used for unknown indication
     Dosage: 5 MG, QD
     Route: 065
  62. FERINJECT [Concomitant]
     Active Substance: FERRIC CARBOXYMALTOSE
     Indication: Product used for unknown indication
     Dosage: 500 MG
     Route: 065
  63. VENLAFAXINE [Concomitant]
     Active Substance: VENLAFAXINE HYDROCHLORIDE
     Indication: Product used for unknown indication
     Dosage: 75 MG, BID FOR 1 YEAR:
     Route: 065
  64. ALPRAZOLAM [Concomitant]
     Active Substance: ALPRAZOLAM
     Indication: Anxiety
     Dosage: UNK (5 MG ON DEMAND (SOMETIMES  2/DAY - EVERY WEEK, HALF THE WEEK)
     Route: 065

REACTIONS (26)
  - Peripheral ischaemia [Not Recovered/Not Resolved]
  - Systemic lupus erythematosus [Unknown]
  - Myelodysplastic syndrome [Unknown]
  - Uveitis [Unknown]
  - Depression suicidal [Unknown]
  - Photosensitivity reaction [Unknown]
  - COVID-19 [Unknown]
  - Gastrointestinal disorder [Unknown]
  - Irritable bowel syndrome [Unknown]
  - Back pain [Unknown]
  - Sciatica [Unknown]
  - Musculoskeletal stiffness [Unknown]
  - Pain [Unknown]
  - Dyspepsia [Unknown]
  - Fatigue [Unknown]
  - Pain in extremity [Unknown]
  - Oesophagitis [Unknown]
  - Gastrooesophageal reflux disease [Unknown]
  - Regurgitation [Unknown]
  - Dysphagia [Unknown]
  - Oral disorder [Unknown]
  - Hiatus hernia [Unknown]
  - Rectal prolapse [Unknown]
  - Neutrophil count increased [Unknown]
  - Blood lactate dehydrogenase increased [Unknown]
  - Vitamin B12 deficiency [Unknown]

NARRATIVE: CASE EVENT DATE: 20170304
